FAERS Safety Report 24845388 (Version 1)
Quarter: 2025Q1

REPORT INFORMATION
  Report Type: Spontaneous
  Country: US (occurrence: None)
  Receive Date: 20250115
  Receipt Date: 20250115
  Transmission Date: 20250409
  Serious: Yes (Hospitalization)
  Sender: FDA-CTU
  Company Number: None

PATIENT
  Age: 16 Year
  Sex: Male
  Weight: 50 kg

DRUGS (9)
  1. XELJANZ [Suspect]
     Active Substance: TOFACITINIB CITRATE
     Indication: Juvenile idiopathic arthritis
     Dosage: FREQUENCY : TWICE A DAY;?
     Route: 048
     Dates: start: 20210619, end: 20230604
  2. ACETAMINOPHEN [Concomitant]
     Active Substance: ACETAMINOPHEN
  3. BENZOYL/PEROXIDE WASH [Concomitant]
  4. BISACADYL [Concomitant]
  5. VITAMINS [Concomitant]
     Active Substance: VITAMINS
  6. LINACLOTIDE [Concomitant]
     Active Substance: LINACLOTIDE
  7. RITALIN [Concomitant]
     Active Substance: METHYLPHENIDATE HYDROCHLORIDE
  8. MONTELUKAST [Concomitant]
     Active Substance: MONTELUKAST
  9. TRETINION [Concomitant]

REACTIONS (2)
  - Pancreatitis necrotising [None]
  - Therapy interrupted [None]

NARRATIVE: CASE EVENT DATE: 20250104
